FAERS Safety Report 17403199 (Version 2)
Quarter: 2020Q1

REPORT INFORMATION
  Report Type: Spontaneous
  Country: US (occurrence: US)
  Receive Date: 20200211
  Receipt Date: 20200312
  Transmission Date: 20200409
  Serious: Yes (Other)
  Sender: FDA-Public Use
  Company Number: US-FARMAPROD-202002-0141

PATIENT
  Age: 24 Year
  Sex: Male

DRUGS (4)
  1. OXERVATE [Suspect]
     Active Substance: CENEGERMIN-BKBJ
     Indication: NEUROTROPHIC KERATOPATHY
     Route: 047
     Dates: end: 20190919
  2. LUBRICANT TEARS [Concomitant]
  3. AUTOCOAGULAS [Concomitant]
  4. ERYTHROMYCIN. [Concomitant]
     Active Substance: ERYTHROMYCIN

REACTIONS (2)
  - Visual impairment [Recovering/Resolving]
  - Corneal neovascularisation [Recovering/Resolving]

NARRATIVE: CASE EVENT DATE: 202001
